FAERS Safety Report 8501913-1 (Version None)
Quarter: 2012Q3

REPORT INFORMATION
  Report Type: 
  Country: None (occurrence: None)
  Receive Date: 20120711
  Receipt Date: 20120706
  Transmission Date: 20120928
  Serious: Yes (Other)
  Sender: FDA-Public Use
  Company Number: PHEH2012US013352

PATIENT

DRUGS (2)
  1. ARITHMADEX [Concomitant]
     Dosage: UNK UKN, UNK
  2. DIOVAN HCT [Suspect]
     Dosage: UNK UKN, UNK

REACTIONS (2)
  - ARTHRALGIA [None]
  - BREAST CANCER [None]
